FAERS Safety Report 7319155-4 (Version None)
Quarter: 2011Q1

REPORT INFORMATION
  Report Type: 
  Country: None (occurrence: None)
  Receive Date: 20110228
  Receipt Date: 20110216
  Transmission Date: 20110831
  Serious: Yes (Other)
  Sender: FDA-Public Use
  Company Number: PHHY2011DE08631

PATIENT
  Age: 56 Year

DRUGS (3)
  1. SUNITINIB MALATE [Suspect]
  2. EVEROLIMUS [Concomitant]
  3. ZOMETA [Suspect]

REACTIONS (6)
  - PAIN IN JAW [None]
  - PURULENT DISCHARGE [None]
  - MUCOSAL INFLAMMATION [None]
  - OSTEONECROSIS OF JAW [None]
  - BONE DISORDER [None]
  - IMPAIRED HEALING [None]
